FAERS Safety Report 7540683-0 (Version None)
Quarter: 2011Q2

REPORT INFORMATION
  Report Type: 
  Country: None (occurrence: None)
  Receive Date: 20110603
  Receipt Date: 20110525
  Transmission Date: 20111010
  Serious: Yes (Other)
  Sender: FDA-Public Use
  Company Number: 2011SP024116

PATIENT

DRUGS (2)
  1. PEG-INTRON [Suspect]
     Indication: HEPATITIS C
     Dosage: SC
     Route: 058
  2. REBETOL [Suspect]
     Indication: HEPATITIS C
     Dosage: PO
     Route: 048

REACTIONS (5)
  - DEPRESSIVE SYMPTOM [None]
  - INTERSTITIAL LUNG DISEASE [None]
  - VISUAL ACUITY REDUCED [None]
  - HEPATIC NEOPLASM MALIGNANT [None]
  - TYPE 1 DIABETES MELLITUS [None]
